FAERS Safety Report 9140289 (Version 2)
Quarter: 2014Q3

REPORT INFORMATION
  Report Type: Spontaneous
  Country: MX (occurrence: MX)
  Receive Date: 20130305
  Receipt Date: 20140813
  Transmission Date: 20150326
  Serious: Yes (Hospitalization, Other)
  Sender: FDA-Public Use
  Company Number: PHHY2013MX021204

PATIENT
  Age: 77 Year
  Sex: Female

DRUGS (15)
  1. CRONOCAPS [Concomitant]
     Indication: SLEEP DISORDER
     Dosage: UNK UKN, UNK
     Dates: start: 201207
  2. EFFEXOR [Concomitant]
     Active Substance: VENLAFAXINE HYDROCHLORIDE
     Indication: DEPRESSION
     Dosage: UNK UKN, UNK
     Dates: start: 2008
  3. SALOFALK ^AVENTIS^ [Concomitant]
     Active Substance: MESALAMINE
     Indication: DYSPEPSIA
     Dosage: UNK UKN, UNK
     Dates: start: 2009
  4. REMERON [Concomitant]
     Active Substance: MIRTAZAPINE
     Indication: SLEEP DISORDER
     Dosage: UNK UKN, UNK
     Dates: start: 201208
  5. NORFENON [Concomitant]
     Indication: TACHYCARDIA
     Dosage: UNK UKN, UNK
     Dates: start: 201302
  6. TAFIROL 1 G [Concomitant]
     Indication: PAIN
     Dosage: UNK UKN, UNK
     Dates: start: 201302
  7. ACLASTA [Suspect]
     Active Substance: ZOLEDRONIC ACID
     Indication: OSTEOPOROSIS
     Dosage: 5 MG, ANNUALLY
     Route: 042
     Dates: end: 201401
  8. PRIMIDONE. [Concomitant]
     Active Substance: PRIMIDONE
     Indication: HEAD TITUBATION
     Dosage: UNK UKN, UNK
     Dates: start: 2010
  9. STILNOX [Concomitant]
     Active Substance: ZOLPIDEM TARTRATE
     Indication: SLEEP DISORDER
     Dosage: UNK UKN, UNK
  10. LIPITOR [Concomitant]
     Active Substance: ATORVASTATIN CALCIUM
     Indication: BLOOD CHOLESTEROL INCREASED
     Dosage: UNK UKN, UNK
     Dates: start: 2012
  11. OSCAL D                            /07451701/ [Concomitant]
     Indication: OSTEOPOROSIS
     Dosage: UNK UKN, UNK
     Dates: start: 2011
  12. CARDURA [Concomitant]
     Active Substance: DOXAZOSIN MESYLATE
     Indication: HYDRONEPHROSIS
     Dosage: UNK UKN, UNK
     Dates: start: 2008
  13. OMEPRAZOLE. [Concomitant]
     Active Substance: OMEPRAZOLE
     Indication: GASTRIC DISORDER
     Dosage: UNK UKN, UNK
  14. LEXOTAN [Concomitant]
     Active Substance: BROMAZEPAM
     Indication: SLEEP DISORDER
     Dosage: UNK UKN, UNK
     Dates: start: 2011
  15. ASPIRIN PROTECT [Concomitant]
     Active Substance: ASPIRIN
     Indication: CARDIAC DISORDER
     Dosage: UNK UKN, UNK

REACTIONS (4)
  - Fall [Not Recovered/Not Resolved]
  - Back disorder [Recovered/Resolved]
  - Chondropathy [Not Recovered/Not Resolved]
  - Arthralgia [Not Recovered/Not Resolved]

NARRATIVE: CASE EVENT DATE: 20130224
